FAERS Safety Report 17541232 (Version 1)
Quarter: 2020Q1

REPORT INFORMATION
  Report Type: Spontaneous
  Country: JP (occurrence: JP)
  Receive Date: 20200313
  Receipt Date: 20200313
  Transmission Date: 20200409
  Serious: Yes (Other)
  Sender: FDA-Public Use
  Company Number: JP-BAYER-2020-041852

PATIENT
  Age: 52 Year
  Sex: Male

DRUGS (3)
  1. GADOVIST [Suspect]
     Active Substance: GADOBUTROL
     Indication: MAGNETIC RESONANCE IMAGING
  2. GADOVIST [Suspect]
     Active Substance: GADOBUTROL
     Indication: PROSTATIC DISORDER
     Dosage: 7.2 ML BY 3 PER SECOND, ONCE
     Route: 042
     Dates: start: 20200307, end: 20200307
  3. SODIUM CHLORIDE. [Concomitant]
     Active Substance: SODIUM CHLORIDE
     Dosage: PUSHED WITH SALINE 50 ML
     Dates: start: 20200307

REACTIONS (4)
  - Discomfort [Recovering/Resolving]
  - Bradycardia [None]
  - Cough [Recovering/Resolving]
  - Vomiting [Recovering/Resolving]

NARRATIVE: CASE EVENT DATE: 20200307
